FAERS Safety Report 15531269 (Version 1)
Quarter: 2018Q4

REPORT INFORMATION
  Report Type: Spontaneous
  Country: US (occurrence: US)
  Receive Date: 20181019
  Receipt Date: 20181019
  Transmission Date: 20190205
  Serious: Yes (Other)
  Sender: FDA-Public Use
  Company Number: US-ROCHE-2192556

PATIENT
  Age: 55 Year
  Sex: Male

DRUGS (17)
  1. VALGANCICLOVIR. [Concomitant]
     Active Substance: VALGANCICLOVIR
     Indication: PROPHYLAXIS
     Route: 065
  2. AZITHROMYCIN ANHYDROUS. [Concomitant]
     Active Substance: AZITHROMYCIN ANHYDROUS
  3. MYCOPHENOLATE MOFETIL. [Suspect]
     Active Substance: MYCOPHENOLATE MOFETIL
     Indication: GOODPASTURE^S SYNDROME
     Route: 065
  4. ATOVAQUONE. [Concomitant]
     Active Substance: ATOVAQUONE
     Indication: PROPHYLAXIS
  5. AMLODIPINE BESILATE [Concomitant]
     Active Substance: AMLODIPINE BESYLATE
  6. HYDRALAZINE [Concomitant]
     Active Substance: HYDRALAZINE HYDROCHLORIDE
  7. SULFAMETHOXAZOLE/TRIMETHOPRIM [Suspect]
     Active Substance: SULFAMETHOXAZOLE\TRIMETHOPRIM
     Indication: PRODUCT USED FOR UNKNOWN INDICATION
     Route: 065
  8. RIFAMPICIN [Suspect]
     Active Substance: RIFAMPIN
     Indication: PRODUCT USED FOR UNKNOWN INDICATION
     Route: 048
  9. ABACAVIR. [Concomitant]
     Active Substance: ABACAVIR
  10. LAMIVUDINE. [Concomitant]
     Active Substance: LAMIVUDINE
  11. ATENOLOL. [Concomitant]
     Active Substance: ATENOLOL
  12. INSULIN LISPRO [Concomitant]
     Active Substance: INSULIN LISPRO
  13. IMMUNOGLOBULIN NOS [Suspect]
     Active Substance: IMMUNE GLOBULIN NOS
     Indication: GOODPASTURE^S SYNDROME
     Route: 042
  14. RITUXIMAB. [Suspect]
     Active Substance: RITUXIMAB
     Indication: GOODPASTURE^S SYNDROME
     Route: 042
  15. MYCOPHENOLATE MOFETIL. [Suspect]
     Active Substance: MYCOPHENOLATE MOFETIL
     Route: 065
  16. ATAZANAVIR. [Concomitant]
     Active Substance: ATAZANAVIR SULFATE
  17. INSULIN GLARGINE [Concomitant]
     Active Substance: INSULIN GLARGINE

REACTIONS (3)
  - Gastritis erosive [Recovered/Resolved]
  - Oesophageal candidiasis [Recovered/Resolved]
  - Tubulointerstitial nephritis [Not Recovered/Not Resolved]
